FAERS Safety Report 12804581 (Version 1)
Quarter: 2016Q4

REPORT INFORMATION
  Report Type: Spontaneous
  Country: FR (occurrence: FR)
  Receive Date: 20161003
  Receipt Date: 20161003
  Transmission Date: 20170207
  Serious: Yes (Death)
  Sender: FDA-Public Use
  Company Number: FR-ALLERGAN-1670499US

PATIENT
  Age: 89 Year
  Sex: Female

DRUGS (7)
  1. IMOVANE [Concomitant]
     Active Substance: ZOPICLONE
     Dosage: 7.5 MG, QHS
  2. TRANSIPEG [Concomitant]
     Active Substance: POLYETHYLENE GLYCOL 3350
     Dosage: UNK, BID (MORNING AND NIGHT)
     Route: 048
  3. INOFER [Concomitant]
     Dosage: 2 DF, QAM
  4. SEROPLEX TABLETS [Suspect]
     Active Substance: ESCITALOPRAM OXALATE
     Indication: DEPRESSION
     Dosage: 10 MG, QD
     Route: 048
     Dates: end: 20160615
  5. KARDEGIC [Interacting]
     Active Substance: ASPIRIN LYSINE
     Indication: ISCHAEMIC STROKE
     Dosage: 75 MG, QD
     Route: 048
     Dates: end: 20160615
  6. COAPROVEL [Concomitant]
     Active Substance: HYDROCHLOROTHIAZIDE\IRBESARTAN
     Dosage: 150 MG/12.5 MG, QAM
  7. PARACETAMOL [Concomitant]
     Active Substance: ACETAMINOPHEN
     Dosage: 1G, PRN (MORNING AND NIGHT IF PAIN)

REACTIONS (4)
  - Rectal haemorrhage [Fatal]
  - Haematemesis [Fatal]
  - Drug interaction [Fatal]
  - Anaemia [Fatal]

NARRATIVE: CASE EVENT DATE: 20160615
